FAERS Safety Report 14761832 (Version 1)
Quarter: 2018Q2

REPORT INFORMATION
  Report Type: Spontaneous
  Country: GB (occurrence: GB)
  Receive Date: 20180416
  Receipt Date: 20180416
  Transmission Date: 20180711
  Serious: Yes (Life-Threatening, Hospitalization)
  Sender: FDA-Public Use
  Company Number: GB-TEVA-2018-GB-881609

PATIENT
  Age: 76 Year

DRUGS (23)
  1. UBIDECARENONE [Concomitant]
     Active Substance: UBIDECARENONE
     Dosage: 100 MILLIGRAM DAILY;
  2. CYANOCOBALAMIN. [Concomitant]
     Active Substance: CYANOCOBALAMIN
     Route: 065
  3. GLUCOSAMINE HYDROCHLORIDE [Suspect]
     Active Substance: GLUCOSAMINE HYDROCHLORIDE
     Dosage: 1500 MILLIGRAM DAILY;
     Route: 048
  4. COLECALCIFEROL [Concomitant]
     Active Substance: CHOLECALCIFEROL
     Dosage: 1000 IU (INTERNATIONAL UNIT) DAILY;
  5. ALLENS PINE AND HONEY BALSAM [Concomitant]
     Dosage: 5-10ML
     Route: 048
  6. GINKGO BILOBA [Suspect]
     Active Substance: GINKGO
     Dosage: 6 GRAM DAILY;
  7. SILYBUM MARIANUM EXTRACT [Concomitant]
     Active Substance: DIETARY SUPPLEMENT\HERBALS\MILK THISTLE
     Dosage: 100 MILLIGRAM DAILY;
  8. PEPPERMINT OIL [Concomitant]
     Active Substance: PEPPERMINT OIL
     Dosage: 100 MILLIGRAM DAILY; ONCE A DAY.
  9. ALPHA-TOCOPHEROL [Suspect]
     Active Substance: .ALPHA.-TOCOPHEROL
     Dosage: 400 IU (INTERNATIONAL UNIT) DAILY;
  10. EICOSAPENTAENOIC ACID [Suspect]
     Active Substance: ICOSAPENT
     Dosage: 460 MILLIGRAM DAILY;
  11. BETAINE [Concomitant]
     Active Substance: BETAINE
     Dosage: 500 MILLIGRAM DAILY;
  12. ARISTOTELIA CHILENSIS FRUIT [Concomitant]
     Dosage: 500 MILLIGRAM DAILY;
  13. DOCOSAHEXAENOIC ACID [Suspect]
     Active Substance: DOCONEXENT
     Dosage: 380 MILLIGRAM DAILY;
  14. MELISSA [Concomitant]
     Route: 065
  15. ZINC ACETATE [Concomitant]
     Active Substance: ZINC ACETATE
     Dosage: 25 MILLIGRAM DAILY;
  16. TURMERIC [Suspect]
     Active Substance: HERBALS\TURMERIC
     Dosage: 500 MILLIGRAM DAILY;
  17. DIMETHYL SULFONE [Concomitant]
     Active Substance: DIMETHYL SULFONE
     Dosage: 250 MILLIGRAM DAILY;
  18. CALCIUM CARBONATE. [Concomitant]
     Active Substance: CALCIUM CARBONATE
     Dosage: 1 GRAM DAILY;
  19. ECHINACEA [Concomitant]
     Active Substance: ECHINACEA, UNSPECIFIED
     Route: 065
  20. SERTRALINE [Suspect]
     Active Substance: SERTRALINE HYDROCHLORIDE
     Dosage: 50 MILLIGRAM DAILY;
     Route: 048
  21. GARLIC EXTRACT [Suspect]
     Active Substance: GARLIC
     Dosage: 2 GRAM DAILY;
  22. PREMARIN [Concomitant]
     Active Substance: ESTROGENS, CONJUGATED
     Dosage: .3 MILLIGRAM DAILY;
  23. MAGNESIUM CARBONATE HEAVY [Concomitant]
     Dosage: 500 MILLIGRAM DAILY;

REACTIONS (3)
  - Confusional state [Unknown]
  - Haemorrhage intracranial [Recovered/Resolved with Sequelae]
  - Visual impairment [Unknown]
